FAERS Safety Report 24307821 (Version 1)
Quarter: 2024Q3

REPORT INFORMATION
  Report Type: Spontaneous
  Country: US (occurrence: None)
  Receive Date: 20240911
  Receipt Date: 20240911
  Transmission Date: 20241017
  Serious: Yes (Hospitalization)
  Sender: Public
  Company Number: None

PATIENT
  Age: 70 Year
  Sex: Female

DRUGS (2)
  1. TAVNEOS [Suspect]
     Active Substance: AVACOPAN
     Dosage: FREQUENCY : TWICE A DAY;?
     Route: 048
     Dates: start: 20230509
  2. TAVNEOS [Concomitant]
     Active Substance: AVACOPAN
     Dates: start: 20230509

REACTIONS (3)
  - Skin disorder [None]
  - Impaired healing [None]
  - Infection [None]

NARRATIVE: CASE EVENT DATE: 20240910
